FAERS Safety Report 5076348-7 (Version None)
Quarter: 2006Q3

REPORT INFORMATION
  Report Type: 
  Country: None (occurrence: None)
  Receive Date: 20060807
  Receipt Date: 20060725
  Transmission Date: 20061208
  Serious: Yes (Other)
  Sender: FDA-Public Use
  Company Number: FRWYE358225JUL06

PATIENT
  Age: 80 Year
  Sex: Female

DRUGS (1)
  1. EFFEXOR [Suspect]
     Indication: DEPRESSION
     Dosage: 75 MG TOTAL DAILY THEN TAPERED OVER A 3-DAY PERIOD, ORAL
     Route: 048
     Dates: end: 20060701

REACTIONS (8)
  - ACUTE CORONARY SYNDROME [None]
  - BLOOD LACTATE DEHYDROGENASE INCREASED [None]
  - BRADYCARDIA [None]
  - DRUG WITHDRAWAL SYNDROME [None]
  - HEART RATE INCREASED [None]
  - MALAISE [None]
  - ORTHOSTATIC HYPOTENSION [None]
  - TROPONIN INCREASED [None]
